FAERS Safety Report 11836161 (Version 2)
Quarter: 2016Q1

REPORT INFORMATION
  Report Type: Spontaneous
  Country: US (occurrence: US)
  Receive Date: 20151215
  Receipt Date: 20160105
  Transmission Date: 20160525
  Serious: Yes (Other)
  Sender: FDA-Public Use
  Company Number: US-AMGEN-USASP2015132174

PATIENT
  Age: 70 Year
  Sex: Female

DRUGS (1)
  1. NEULASTA [Suspect]
     Active Substance: PEGFILGRASTIM
     Indication: NEUTROPENIA
     Dosage: UNK
     Route: 065

REACTIONS (5)
  - Device failure [Unknown]
  - Application site haemorrhage [Unknown]
  - Chromaturia [Unknown]
  - Nephrolithiasis [Unknown]
  - Device dislocation [Unknown]

NARRATIVE: CASE EVENT DATE: 20151230
